FAERS Safety Report 21811588 (Version 1)
Quarter: 2023Q1

REPORT INFORMATION
  Report Type: Spontaneous
  Country: US (occurrence: US)
  Receive Date: 20230103
  Receipt Date: 20230103
  Transmission Date: 20230417
  Serious: Yes (Hospitalization)
  Sender: FDA-Public Use
  Company Number: US-MYLANLABS-2022M1140715

PATIENT
  Age: 67 Year
  Sex: Male
  Weight: 80 kg

DRUGS (6)
  1. HEPARIN [Interacting]
     Active Substance: HEPARIN SODIUM
     Indication: Anticoagulant therapy
     Dosage: 23000 UNITS
     Route: 042
  2. HEPARIN [Interacting]
     Active Substance: HEPARIN SODIUM
     Dosage: 10000 UNITS
     Route: 065
  3. HEPARIN [Interacting]
     Active Substance: HEPARIN SODIUM
     Dosage: 15000 UNITS
     Route: 065
  4. ANDEXANET ALFA [Interacting]
     Active Substance: ANDEXANET ALFA
     Indication: Procoagulant therapy
     Dosage: 800 MILLIGRAM, OVER 30 MIN, FULL DOSE OVER 30 MINUTES
     Route: 065
  5. ANDEXANET ALFA [Interacting]
     Active Substance: ANDEXANET ALFA
     Dosage: UNK (8 MG/MIN OVER 120 MINUTES)
     Route: 042
  6. PROTHROMBIN [Interacting]
     Active Substance: PROTHROMBIN
     Indication: Procoagulant therapy
     Dosage: 3779 INTERNATIONAL UNIT
     Route: 065

REACTIONS (3)
  - Drug interaction [Unknown]
  - Heparin resistance [Unknown]
  - Thrombosis [Unknown]
